FAERS Safety Report 7224309-1 (Version None)
Quarter: 2011Q1

REPORT INFORMATION
  Report Type: 
  Country: None (occurrence: None)
  Receive Date: 20110104
  Receipt Date: 20101122
  Transmission Date: 20110831
  Serious: Yes (Other)
  Sender: FDA-Public Use
  Company Number: 024215

PATIENT
  Sex: Female

DRUGS (1)
  1. CIMZIA [Suspect]
     Indication: CROHN'S DISEASE
     Dosage: (400 1X/28 DAYS SUBCUTANEOUS)
     Route: 058
     Dates: start: 20100610

REACTIONS (3)
  - CANDIDIASIS [None]
  - UPPER RESPIRATORY TRACT INFECTION [None]
  - PULMONARY MASS [None]
